FAERS Safety Report 5982525-0 (Version None)
Quarter: 2008Q4

REPORT INFORMATION
  Report Type: 
  Country: None (occurrence: None)
  Receive Date: 20081208
  Receipt Date: 20081203
  Transmission Date: 20090506
  Serious: Yes (Other)
  Sender: FDA-Public Use
  Company Number: AU-BRISTOL-MYERS SQUIBB COMPANY-14409577

PATIENT

DRUGS (1)
  1. MITOMYCIN [Suspect]
     Dosage: STRENGTH = 0.04%

REACTIONS (1)
  - TRANSPLANT REJECTION [None]
